FAERS Safety Report 7549966-1 (Version None)
Quarter: 2011Q2

REPORT INFORMATION
  Report Type: 
  Country: None (occurrence: None)
  Receive Date: 20110615
  Receipt Date: 20110613
  Transmission Date: 20111010
  Serious: No
  Sender: FDA-Public Use
  Company Number: US-PFIZER INC-2011100664

PATIENT
  Sex: Female
  Weight: 46.259 kg

DRUGS (1)
  1. ADVIL LIQUI-GELS [Suspect]
     Indication: PAIN IN EXTREMITY
     Dosage: 200 MG, 2 A DAY, AS NEEDED
     Route: 048
     Dates: end: 20110509

REACTIONS (2)
  - DRUG INEFFECTIVE [None]
  - HEARING IMPAIRED [None]
